FAERS Safety Report 15866425 (Version 3)
Quarter: 2019Q3

REPORT INFORMATION
  Report Type: Spontaneous
  Country: PR (occurrence: PR)
  Receive Date: 20190125
  Receipt Date: 20190718
  Transmission Date: 20191004
  Serious: No
  Sender: FDA-Public Use
  Company Number: PR-PFIZER INC-2019033260

PATIENT
  Age: 82 Year
  Sex: Female

DRUGS (2)
  1. XELJANZ XR [Suspect]
     Active Substance: TOFACITINIB CITRATE
     Indication: RHEUMATOID ARTHRITIS
     Dosage: 11 MG, DAILY
     Dates: start: 20180119, end: 2018
  2. XELJANZ XR [Suspect]
     Active Substance: TOFACITINIB CITRATE
     Dosage: 11 MG, DAILY
     Dates: start: 20181219

REACTIONS (5)
  - Urticaria [Unknown]
  - Dysuria [Unknown]
  - Influenza [Unknown]
  - Productive cough [Unknown]
  - Drug hypersensitivity [Unknown]
